FAERS Safety Report 14618483 (Version 3)
Quarter: 2018Q1

REPORT INFORMATION
  Report Type: Spontaneous
  Country: US (occurrence: US)
  Receive Date: 20180309
  Receipt Date: 20180329
  Transmission Date: 20180509
  Serious: Yes (Other)
  Sender: FDA-Public Use
  Company Number: US-SAOL THERAPEUTICS-2018SAO00194

PATIENT
  Sex: Male

DRUGS (2)
  1. LIORESAL [Suspect]
     Active Substance: BACLOFEN
     Indication: MUSCLE SPASTICITY
     Dosage: 960 ?G, \DAY
     Route: 037
     Dates: start: 20180201
  2. LIORESAL [Suspect]
     Active Substance: BACLOFEN
     Indication: MUSCLE SPASTICITY

REACTIONS (6)
  - Hyperhidrosis [Unknown]
  - Drug withdrawal syndrome [Unknown]
  - Hypertonia [Unknown]
  - Therapy non-responder [Unknown]
  - Arthralgia [Unknown]
  - Device malfunction [Unknown]
